FAERS Safety Report 14602229 (Version 1)
Quarter: 2018Q1

REPORT INFORMATION
  Report Type: Spontaneous
  Country: IT (occurrence: IT)
  Receive Date: 20180306
  Receipt Date: 20180306
  Transmission Date: 20180509
  Serious: Yes (Other)
  Sender: FDA-Public Use
  Company Number: IT-SA-2018SA048352

PATIENT
  Sex: Female

DRUGS (3)
  1. AUBAGIO [Suspect]
     Active Substance: TERIFLUNOMIDE
     Indication: MULTIPLE SCLEROSIS
     Route: 048
     Dates: start: 20140714, end: 20171024
  2. OXCARBAZEPINE. [Concomitant]
     Active Substance: OXCARBAZEPINE
     Route: 065
  3. BACLOFEN. [Concomitant]
     Active Substance: BACLOFEN
     Route: 065

REACTIONS (2)
  - Dysentery [Recovered/Resolved]
  - Drug ineffective [Unknown]

NARRATIVE: CASE EVENT DATE: 20161220
